FAERS Safety Report 6317947-1 (Version None)
Quarter: 2009Q3

REPORT INFORMATION
  Report Type: 
  Country: None (occurrence: None)
  Receive Date: 20090820
  Receipt Date: 20090820
  Transmission Date: 20100115
  Serious: Yes (Hospitalization)
  Sender: FDA-Public Use
  Company Number: None

PATIENT
  Age: 24 Year
  Sex: Female
  Weight: 131 kg

DRUGS (8)
  1. VANCOMYCIN [Suspect]
     Indication: ABSCESS
     Dosage: 2 GRAMS Q8H IV
     Route: 042
     Dates: start: 20090813, end: 20090814
  2. VANCOMYCIN [Suspect]
     Indication: STAPHYLOCOCCAL INFECTION
     Dosage: 2 GRAMS Q8H IV
     Route: 042
     Dates: start: 20090813, end: 20090814
  3. ACETAMINOPHEN [Concomitant]
  4. NORCO [Concomitant]
  5. CIPROFLOXACIN [Concomitant]
  6. DIPHENHYDRAMINE HCL [Concomitant]
  7. HYDROMORPHONE HCL [Concomitant]
  8. METRONIDAZOLE [Concomitant]

REACTIONS (2)
  - PRODUCT QUALITY ISSUE [None]
  - RENAL FAILURE ACUTE [None]
